FAERS Safety Report 11776703 (Version 1)
Quarter: 2015Q4

REPORT INFORMATION
  Report Type: Spontaneous
  Country: US (occurrence: None)
  Receive Date: 20151124
  Receipt Date: 20151124
  Transmission Date: 20160304
  Serious: No
  Sender: FDA-Public Use
  Company Number: None

PATIENT
  Age: 21 Year
  Sex: Female
  Weight: 49.9 kg

DRUGS (2)
  1. JOLESSA [Suspect]
     Active Substance: ETHINYL ESTRADIOL\LEVONORGESTREL
     Indication: ENDOMETRIOSIS
     Route: 048
  2. ATENOLOL. [Concomitant]
     Active Substance: ATENOLOL

REACTIONS (16)
  - Libido decreased [None]
  - Breast swelling [None]
  - Breast induration [None]
  - Chest pain [None]
  - Menorrhagia [None]
  - Mood swings [None]
  - Confusional state [None]
  - Postural orthostatic tachycardia syndrome [None]
  - Fluid retention [None]
  - Decreased appetite [None]
  - Acne [None]
  - Nausea [None]
  - Migraine [None]
  - Rheumatoid arthritis [None]
  - Breast tenderness [None]
  - Condition aggravated [None]
